FAERS Safety Report 6495675-X (Version None)
Quarter: 2009Q4

REPORT INFORMATION
  Report Type: 
  Country: None (occurrence: None)
  Receive Date: 20091214
  Receipt Date: 20090819
  Transmission Date: 20100525
  Serious: No
  Sender: FDA-Public Use
  Company Number: US-BRISTOL-MYERS SQUIBB COMPANY-14722961

PATIENT
  Age: 45 Year
  Sex: Female

DRUGS (5)
  1. ABILIFY [Suspect]
     Indication: MENTAL DISORDER
     Dosage: 1 DF = 100 MG AT BED TIME AND 25 MG IN MORNING
     Route: 048
     Dates: start: 20081002, end: 20081003
  2. PROVIGIL [Suspect]
  3. WELLBUTRIN [Suspect]
  4. CELEXA [Suspect]
  5. CLOZARIL [Suspect]
     Dosage: 1 DF = 25MG IN AM + 100MG AT BED TIME

REACTIONS (1)
  - FALL [None]
